FAERS Safety Report 8709841 (Version 2)
Quarter: 2013Q3

REPORT INFORMATION
  Report Type: Report from Study
  Country: MW (occurrence: US)
  Receive Date: 20120806
  Receipt Date: 20130830
  Transmission Date: 20140515
  Serious: Yes (Death, Hospitalization, Other)
  Sender: FDA-Public Use
  Company Number: US-009507513-1112USA01248

PATIENT
  Age: 32 Year
  Sex: Female

DRUGS (4)
  1. MK-0518 [Suspect]
     Dosage: UNK
     Route: 048
     Dates: start: 20101207, end: 20120401
  2. LOPINAVIR (+) RITONAVIR [Suspect]
     Dosage: UNK
     Route: 048
     Dates: start: 20111207, end: 20120401
  3. BRUFEN [Suspect]
     Dates: start: 20111014
  4. SULFAMETHOXAZOLE (+) TRIMETHOPRIM [Concomitant]
     Dates: start: 20060630, end: 20120413

REACTIONS (5)
  - Anaemia of pregnancy [Not Recovered/Not Resolved]
  - Exposure during pregnancy [Recovered/Resolved]
  - Lip squamous cell carcinoma [Fatal]
  - Xeroderma pigmentosum [Fatal]
  - Premature labour [Unknown]
